FAERS Safety Report 6181928-1 (Version None)
Quarter: 2009Q2

REPORT INFORMATION
  Report Type: 
  Country: None (occurrence: None)
  Receive Date: 20090505
  Receipt Date: 20090422
  Transmission Date: 20091009
  Serious: Yes (Hospitalization)
  Sender: FDA-Public Use
  Company Number: 234491K09USA

PATIENT
  Age: 43 Year
  Sex: Male

DRUGS (8)
  1. REBIF [Suspect]
     Indication: MULTIPLE SCLEROSIS
     Dosage: 44 MCG, 3 IN 1 WEEKS, SUBCUTANEOUS
     Route: 058
     Dates: start: 20090210
  2. HYDROCHLOROTHIAZIDE [Concomitant]
  3. DIOVAN [Concomitant]
  4. LIPITOR [Concomitant]
  5. METFORMIN HCL [Concomitant]
  6. ACTOS [Concomitant]
  7. LONG ACTING INSULIN (INSULINS AND ANALOGUES, LONG-ACTING) [Concomitant]
  8. SHORT ACTING INSULIN (INSULINS AND ANALOGUES, FAST-ACTING) [Concomitant]

REACTIONS (3)
  - ABDOMINAL PAIN UPPER [None]
  - INCISIONAL HERNIA [None]
  - POSTOPERATIVE ILEUS [None]
